FAERS Safety Report 7815604-3 (Version None)
Quarter: 2011Q4

REPORT INFORMATION
  Report Type: 
  Country: None (occurrence: None)
  Receive Date: 20111012
  Receipt Date: 20111004
  Transmission Date: 20120403
  Serious: Yes (Hospitalization)
  Sender: FDA-Public Use
  Company Number: 2011GW000529

PATIENT
  Age: 72 Year
  Sex: Female

DRUGS (3)
  1. OXAZEPAM (OXAZEPAM) (10 MG) [Suspect]
     Indication: INTENTIONAL OVERDOSE
     Dosage: 150 MG;XL
  2. LEVOTHYROXINE SODIUM (LEVOTHYROXINE SODIUM) (50 UG) [Suspect]
     Indication: INTENTIONAL OVERDOSE
     Dosage: 1500 UG;X1
  3. FLECAINIDE ACETATE [Suspect]
     Indication: ARRHYTHMIA
     Dosage: PO
     Route: 048

REACTIONS (9)
  - TOXICITY TO VARIOUS AGENTS [None]
  - HEART RATE DECREASED [None]
  - ELECTROCARDIOGRAM QRS COMPLEX SHORTENED [None]
  - ELECTROCARDIOGRAM QT PROLONGED [None]
  - PNEUMONIA ASPIRATION [None]
  - ELECTROCARDIOGRAM QRS COMPLEX PROLONGED [None]
  - SOMNOLENCE [None]
  - SHOCK [None]
  - MULTIPLE DRUG OVERDOSE INTENTIONAL [None]
